FAERS Safety Report 4918219-X (Version None)
Quarter: 2006Q1

REPORT INFORMATION
  Report Type: 
  Country: None (occurrence: None)
  Receive Date: 20060215
  Receipt Date: 20060203
  Transmission Date: 20060701
  Serious: Yes (Hospitalization, Other)
  Sender: FDA-Public Use
  Company Number: 2006-02-0146

PATIENT
  Age: 38 Year
  Sex: Male

DRUGS (10)
  1. ADENOSINE [Suspect]
     Indication: DIAGNOSTIC PROCEDURE
     Dosage: INTRAVENOUS
     Route: 042
  2. INTERFERON INJECTABLE [Suspect]
     Indication: HEPATITIS C
  3. RIBAVIRIN [Suspect]
     Indication: HEPATITIS C
     Dosage: ORAL
     Route: 048
  4. LANSOPRAZOLE [Concomitant]
  5. URSODEOXYCHOLIC ACID [Concomitant]
  6. CYCLOSPORINE [Concomitant]
  7. PANTOPRAZOLE SODIUM [Concomitant]
  8. PIPERACILLIN SODIUM [Concomitant]
  9. TAZOBACTAM [Concomitant]
  10. VANCOMYCIN HYDROCHLORIDE [Concomitant]

REACTIONS (12)
  - ATRIAL FIBRILLATION [None]
  - ATRIOVENTRICULAR BLOCK [None]
  - BLOOD PRESSURE DECREASED [None]
  - BLOOD PRESSURE DIASTOLIC INCREASED [None]
  - DILATATION ATRIAL [None]
  - DRUG INTERACTION [None]
  - ELECTROCARDIOGRAM QRS COMPLEX PROLONGED [None]
  - HEART VALVE INSUFFICIENCY [None]
  - INFUSION RELATED REACTION [None]
  - RENAL FAILURE [None]
  - SINUS ARREST [None]
  - STREPTOCOCCAL BACTERAEMIA [None]
